FAERS Safety Report 15111475 (Version 3)
Quarter: 2018Q3

REPORT INFORMATION
  Report Type: Spontaneous
  Country: US (occurrence: US)
  Receive Date: 20180705
  Receipt Date: 20180720
  Transmission Date: 20181010
  Serious: Yes (Hospitalization, Other)
  Sender: FDA-Public Use
  Company Number: US-FRESENIUS MEDICAL CARE RENAL THERAPIES GROUP-FMC-1807-001218

PATIENT
  Age: 67 Year
  Sex: Female
  Weight: 71 kg

DRUGS (17)
  1. DELFLEX WITH DEXTROSE 1.5% LOW MAGNESIUM LOW CALCIUM [Suspect]
     Active Substance: CALCIUM CHLORIDE\DEXTROSE\MAGNESIUM CHLORIDE\SODIUM CHLORIDE\SODIUM LACTATE
     Indication: END STAGE RENAL DISEASE
     Dosage: 7 EXCHANGES OF 2000ML AND LAST FILL OF 500ML
     Route: 033
  2. FOLIC ACID. [Concomitant]
     Active Substance: FOLIC ACID
  3. COLACE [Concomitant]
     Active Substance: DOCUSATE SODIUM
  4. ERGOCALCIFEROL. [Concomitant]
     Active Substance: ERGOCALCIFEROL
  5. VELPHORO [Concomitant]
     Active Substance: FERRIC OXYHYDROXIDE
  6. METOPROLOL. [Concomitant]
     Active Substance: METOPROLOL
  7. HEPARIN [Concomitant]
     Active Substance: HEPARIN SODIUM
  8. ASPRIN [Concomitant]
     Active Substance: ASPIRIN
  9. SENSIPAR [Concomitant]
     Active Substance: CINACALCET HYDROCHLORIDE
  10. XANAX [Concomitant]
     Active Substance: ALPRAZOLAM
  11. DELFLEX WITH DEXTROSE 2.5% LOW MAGNESIUM LOW CALCIUM [Suspect]
     Active Substance: CALCIUM CHLORIDE\DEXTROSE\MAGNESIUM CHLORIDE\SODIUM CHLORIDE\SODIUM LACTATE
     Indication: END STAGE RENAL DISEASE
     Dosage: 7 EXCHANGES OF 2000ML AND LAST FILL OF 500ML
     Route: 033
  12. AMLODIPINE [Concomitant]
     Active Substance: AMLODIPINE BESYLATE
  13. WARFARIN [Concomitant]
     Active Substance: WARFARIN
  14. ALLOPURINOL. [Concomitant]
     Active Substance: ALLOPURINOL
  15. AMBIEN [Concomitant]
     Active Substance: ZOLPIDEM TARTRATE
  16. GLYCOLAX [Concomitant]
     Active Substance: POLYETHYLENE GLYCOL 3350
  17. AMIODARONE [Concomitant]
     Active Substance: AMIODARONE

REACTIONS (2)
  - Sepsis [Unknown]
  - Peritonitis bacterial [Unknown]

NARRATIVE: CASE EVENT DATE: 201807
